FAERS Safety Report 6290342-X (Version None)
Quarter: 2009Q3

REPORT INFORMATION
  Report Type: 
  Country: None (occurrence: None)
  Receive Date: 20090730
  Receipt Date: 20090305
  Transmission Date: 20100115
  Serious: No
  Sender: FDA-Public Use
  Company Number: US-BRISTOL-MYERS SQUIBB COMPANY-14531032

PATIENT
  Age: 63 Year
  Sex: Male
  Weight: 100 kg

DRUGS (3)
  1. COUMADIN [Suspect]
     Dates: start: 20090228
  2. WARFARIN SODIUM [Suspect]
  3. LOVENOX [Concomitant]

REACTIONS (3)
  - INTERNATIONAL NORMALISED RATIO DECREASED [None]
  - PROTHROMBIN TIME SHORTENED [None]
  - RASH [None]
